FAERS Safety Report 6546543-6 (Version None)
Quarter: 2010Q1

REPORT INFORMATION
  Report Type: 
  Country: None (occurrence: None)
  Receive Date: 20100122
  Receipt Date: 20100112
  Transmission Date: 20100710
  Serious: Yes (Hospitalization)
  Sender: FDA-Public Use
  Company Number: IL-AMGEN-US386909

PATIENT
  Age: 57 Year
  Sex: Male

DRUGS (14)
  1. ENBREL [Suspect]
     Indication: PSORIATIC ARTHROPATHY
     Route: 058
     Dates: start: 20050101
  2. ENBREL [Suspect]
     Indication: PSORIASIS
  3. SALAZOPYRIN [Suspect]
     Indication: PSORIATIC ARTHROPATHY
     Route: 065
  4. SALAZOPYRIN [Suspect]
     Indication: PSORIASIS
  5. CORTICOSTEROID NOS [Suspect]
     Indication: PSORIATIC ARTHROPATHY
     Route: 065
  6. CORTICOSTEROID NOS [Suspect]
     Indication: PSORIASIS
  7. NSAID'S [Suspect]
     Indication: PSORIATIC ARTHROPATHY
     Dosage: UNKNOWN
     Route: 065
  8. NSAID'S [Suspect]
     Indication: PSORIASIS
  9. METHOTREXATE [Suspect]
     Indication: PSORIATIC ARTHROPATHY
     Dosage: LOW DOSE
     Route: 065
  10. METHOTREXATE [Suspect]
     Indication: PSORIASIS
  11. ERGOCALCIFEROL [Concomitant]
     Route: 065
  12. LANSOPRAZOLE [Concomitant]
     Route: 065
  13. PROPRANOLOL [Concomitant]
     Route: 065
  14. CALCIUM [Concomitant]
     Route: 065

REACTIONS (8)
  - ADDISON'S DISEASE [None]
  - ANEURYSM [None]
  - DRUG INEFFECTIVE [None]
  - HAEMATOMA [None]
  - HEPATIC FUNCTION ABNORMAL [None]
  - PYREXIA [None]
  - SUBDURAL HAEMATOMA [None]
  - THROMBOCYTOPENIA [None]
